FAERS Safety Report 10584030 (Version 1)
Quarter: 2014Q4

REPORT INFORMATION
  Report Type: Spontaneous
  Country: US (occurrence: None)
  Receive Date: 20141113
  Receipt Date: 20141113
  Transmission Date: 20150529
  Serious: Yes (Hospitalization)
  Sender: FDA-Public Use
  Company Number: None

PATIENT
  Age: 67 Year
  Sex: Male
  Weight: 95.2 kg

DRUGS (2)
  1. REGADENOSON [Suspect]
     Active Substance: REGADENOSON
     Indication: SURGERY
     Route: 042
     Dates: start: 20141110, end: 20141110
  2. REGADENOSON [Suspect]
     Active Substance: REGADENOSON
     Indication: CARDIOVASCULAR DISORDER
     Route: 042
     Dates: start: 20141110, end: 20141110

REACTIONS (2)
  - Atrioventricular block [None]
  - Syncope [None]

NARRATIVE: CASE EVENT DATE: 20141110
